FAERS Safety Report 6944761-6 (Version None)
Quarter: 2010Q3

REPORT INFORMATION
  Report Type: 
  Country: None (occurrence: None)
  Receive Date: 20100827
  Receipt Date: 20100813
  Transmission Date: 20110219
  Serious: Yes (Hospitalization, Other)
  Sender: FDA-Public Use
  Company Number: US-ELI_LILLY_AND_COMPANY-US201008006033

PATIENT
  Sex: Female

DRUGS (11)
  1. FORTEO [Suspect]
     Indication: OSTEOPOROSIS
     Dosage: 20 UG, DAILY (1/D)
  2. METHADONE HCL [Concomitant]
     Indication: PAIN
     Dosage: 5 MG, 3/D
  3. LEXAPRO [Concomitant]
     Dosage: 20 MG, 2/D
  4. CLONIDINE [Concomitant]
     Indication: BLOOD PRESSURE
  5. TRIAMTERENE AND HYDROCHLOROTHIAZIDE [Concomitant]
  6. LORAZEPAM [Concomitant]
     Dosage: 1 MG, 4/D
  7. AMBIEN CR [Concomitant]
     Dosage: 5 MG, DAILY (1/D)
  8. SKELAXIN [Concomitant]
     Dosage: 800 MG, AS NEEDED
  9. TRAZODONE HCL [Concomitant]
     Indication: SLEEP DISORDER
     Dosage: 300 MG, DAILY (1/D)
  10. LYRICA [Concomitant]
     Dosage: 150 MG, 2/D
  11. LIALDA [Concomitant]
     Indication: CROHN'S DISEASE

REACTIONS (5)
  - DISORIENTATION [None]
  - HEADACHE [None]
  - NAUSEA [None]
  - PYREXIA [None]
  - URINARY TRACT INFECTION [None]
